FAERS Safety Report 11753824 (Version 1)
Quarter: 2015Q4

REPORT INFORMATION
  Report Type: Spontaneous
  Country: US (occurrence: None)
  Receive Date: 20151118
  Receipt Date: 20151118
  Transmission Date: 20160304
  Serious: Yes (Other)
  Sender: FDA-Public Use
  Company Number: None

PATIENT
  Age: 51 Year
  Sex: Female

DRUGS (1)
  1. TACROLIMUS 0.5 MG [Suspect]
     Active Substance: TACROLIMUS

REACTIONS (2)
  - Tremor [None]
  - Nausea [None]

NARRATIVE: CASE EVENT DATE: 20151117
